FAERS Safety Report 5738311-X (Version None)
Quarter: 2008Q2

REPORT INFORMATION
  Report Type: 
  Country: None (occurrence: None)
  Receive Date: 20080514
  Receipt Date: 20080506
  Transmission Date: 20081010
  Serious: Yes (Hospitalization)
  Sender: FDA-Public Use
  Company Number: FR-AMGEN-UK277897

PATIENT
  Sex: Male

DRUGS (2)
  1. PANITUMUMAB [Suspect]
     Indication: SQUAMOUS CELL CARCINOMA
     Route: 042
     Dates: start: 20071016, end: 20071016
  2. PANITUMUMAB [Suspect]
     Route: 042
     Dates: start: 20080505, end: 20080505

REACTIONS (3)
  - CHILLS [None]
  - HYPERTENSION [None]
  - TREMOR [None]
